FAERS Safety Report 4482306-3 (Version None)
Quarter: 2004Q4

REPORT INFORMATION
  Report Type: 
  Country: None (occurrence: None)
  Receive Date: 20041022
  Receipt Date: 20041004
  Transmission Date: 20050328
  Serious: Yes (Hospitalization)
  Sender: FDA-Public Use
  Company Number: DE-MERCK-0410DEU00069

PATIENT
  Age: 52 Year
  Sex: Female

DRUGS (3)
  1. VIOXX [Suspect]
     Indication: NECK PAIN
     Route: 048
     Dates: start: 20000101, end: 20000101
  2. VIOXX [Suspect]
     Route: 048
     Dates: start: 20020108, end: 20020916
  3. VIOXX [Suspect]
     Route: 048
     Dates: start: 20020917, end: 20040326

REACTIONS (28)
  - ALOPECIA [None]
  - ANEURYSM [None]
  - ANXIETY [None]
  - CEREBRAL HAEMORRHAGE [None]
  - CHEST PAIN [None]
  - CONDITION AGGRAVATED [None]
  - DEPRESSION [None]
  - DIARRHOEA [None]
  - DIPLOPIA [None]
  - DISTURBANCE IN ATTENTION [None]
  - DIZZINESS [None]
  - EPILEPSY [None]
  - ESSENTIAL HYPERTENSION [None]
  - FATIGUE [None]
  - GASTRIC DISORDER [None]
  - GASTROINTESTINAL DISORDER [None]
  - HEADACHE [None]
  - HYPERTENSIVE CRISIS [None]
  - LEUKOPENIA [None]
  - NAUSEA [None]
  - NECK PAIN [None]
  - PARAESTHESIA [None]
  - RUPTURED CEREBRAL ANEURYSM [None]
  - SOMNOLENCE [None]
  - SUBARACHNOID HAEMORRHAGE [None]
  - SYNCOPE [None]
  - THROMBOCYTOPENIA [None]
  - TINNITUS [None]
